FAERS Safety Report 16807617 (Version 18)
Quarter: 2021Q3

REPORT INFORMATION
  Report Type: Report from Study
  Country: US (occurrence: US)
  Receive Date: 20190914
  Receipt Date: 20210714
  Transmission Date: 20211014
  Serious: Yes (Hospitalization)
  Sender: FDA-Public Use
  Company Number: US-ROCHE-2369790

PATIENT
  Age: 75 Year
  Sex: Female
  Weight: 55.1 kg

DRUGS (42)
  1. PLACEBO [Suspect]
     Active Substance: UNSPECIFIED INGREDIENT
     Indication: DIFFUSE LARGE B-CELL LYMPHOMA
     Dosage: MOST RECENT DOSE PRIOR TO AE/SAE ONSET ON 27/AUG/2019?MOST RECENT DOSE PRIOR TO AE/SAE ONSET ON 23/J
     Route: 042
     Dates: start: 20190611
  2. DONEPEZIL. [Concomitant]
     Active Substance: DONEPEZIL
     Indication: DEMENTIA
     Route: 048
  3. PEPCID [Concomitant]
     Active Substance: FAMOTIDINE
     Route: 048
     Dates: start: 20190704, end: 20190704
  4. METOPROLOL. [Concomitant]
     Active Substance: METOPROLOL
     Indication: HYPERTENSION
     Route: 048
  5. ZOFRAN [Concomitant]
     Active Substance: ONDANSETRON HYDROCHLORIDE
     Route: 048
     Dates: start: 20190610
  6. DEXAMETHASONE. [Concomitant]
     Active Substance: DEXAMETHASONE
     Indication: DYSPHAGIA
     Route: 048
     Dates: start: 20190801, end: 20190804
  7. BACTRIM [Concomitant]
     Active Substance: SULFAMETHOXAZOLE\TRIMETHOPRIM
     Route: 048
     Dates: start: 20190610
  8. ACYCLOVIR. [Concomitant]
     Active Substance: ACYCLOVIR
     Route: 048
     Dates: start: 20190904
  9. PACKED RED BLOOD CELLS [Concomitant]
     Active Substance: HUMAN RED BLOOD CELL
     Indication: ANAEMIA
     Route: 042
     Dates: start: 20190704, end: 20190704
  10. NORMAL SALINE [Concomitant]
     Active Substance: SODIUM CHLORIDE
     Dosage: SOLUTION
     Route: 042
     Dates: start: 20190819, end: 20190819
  11. UDENYCA [Concomitant]
     Active Substance: PEGFILGRASTIM-CBQV
     Indication: PROPHYLAXIS
     Dosage: PEGFILGRASTIM?CBQV
     Route: 058
     Dates: start: 20190725, end: 20190725
  12. ACETAMINOPHEN. [Concomitant]
     Active Substance: ACETAMINOPHEN
     Indication: PREMEDICATION
     Route: 048
     Dates: start: 20190701
  13. RITUXIMAB. [Suspect]
     Active Substance: RITUXIMAB
     Indication: DIFFUSE LARGE B-CELL LYMPHOMA
     Dosage: DATE OF MOST RECENT DOSE 577 MG OF RITUXIMAB PRIOR TO SAE/AE ONSET: 26/AUG/2019?DATE OF MOST RECENT
     Route: 042
     Dates: start: 20190610
  14. DOXORUBICIN [Suspect]
     Active Substance: DOXORUBICIN
     Indication: DIFFUSE LARGE B-CELL LYMPHOMA
     Dosage: DATE OF MOST RECENT DOSE 58 MG OF DOXORUBICIN PRIOR TO SAE/AE ONSET:27/AUG/2019?DATE OF MOST RECENT
     Route: 042
     Dates: start: 20190611
  15. LASIX [Concomitant]
     Active Substance: FUROSEMIDE
     Indication: OEDEMA PERIPHERAL
     Route: 048
  16. PACKED RED BLOOD CELLS [Concomitant]
     Active Substance: HUMAN RED BLOOD CELL
     Dosage: 2 UNITS
     Route: 042
     Dates: start: 20190729, end: 20190729
  17. PHENOL. [Concomitant]
     Active Substance: PHENOL
     Indication: DYSPHAGIA
     Route: 048
     Dates: start: 20190731, end: 20190805
  18. UDENYCA [Concomitant]
     Active Substance: PEGFILGRASTIM-CBQV
     Dosage: PEGFILGRASTIM?CBQV
     Route: 058
     Dates: start: 20190829, end: 20190829
  19. LIPITOR [Concomitant]
     Active Substance: ATORVASTATIN CALCIUM
     Indication: BLOOD CHOLESTEROL INCREASED
     Route: 048
  20. ELIQUIS [Concomitant]
     Active Substance: APIXABAN
     Dates: start: 20190612
  21. NORMAL SALINE [Concomitant]
     Active Substance: SODIUM CHLORIDE
     Indication: BLOOD CREATININE INCREASED
     Route: 042
     Dates: start: 20190704, end: 20190716
  22. MEROPENEM. [Concomitant]
     Active Substance: MEROPENEM
     Route: 042
     Dates: start: 20190731, end: 20190804
  23. VITAMIN C [Concomitant]
     Active Substance: ASCORBIC ACID
     Indication: PROPHYLAXIS
     Route: 048
  24. PEPCID [Concomitant]
     Active Substance: FAMOTIDINE
     Indication: GASTROOESOPHAGEAL REFLUX DISEASE
     Route: 048
  25. PLASMALYTE A [Concomitant]
     Route: 042
     Dates: start: 20190704, end: 20190704
  26. MEPRON (UNITED STATES) [Concomitant]
     Route: 048
     Dates: start: 20190610
  27. NORMAL SALINE [Concomitant]
     Active Substance: SODIUM CHLORIDE
     Indication: DIARRHOEA
     Dosage: LIQUID
     Route: 042
     Dates: start: 20190704
  28. TRAMADOL. [Concomitant]
     Active Substance: TRAMADOL
     Indication: DYSPHAGIA
     Route: 048
     Dates: start: 20190731, end: 20190802
  29. ZOSYN [Concomitant]
     Active Substance: PIPERACILLIN SODIUM\TAZOBACTAM SODIUM
     Dosage: SOLUTION
     Route: 042
     Dates: start: 20190731, end: 20190806
  30. PREDNISONE. [Suspect]
     Active Substance: PREDNISONE
     Indication: DIFFUSE LARGE B-CELL LYMPHOMA
     Dosage: DATE OF MOST RECENT DOSE OF PREDNISONE PRIOR TO SAE/AE ONSET: 30/AUG/2019 (100 MG)?DATE OF MOST RECE
     Route: 048
     Dates: start: 20190610
  31. COMPAZINE [Concomitant]
     Active Substance: PROCHLORPERAZINE MALEATE
     Route: 048
     Dates: start: 20190610
  32. FLUCONAZOLE. [Concomitant]
     Active Substance: FLUCONAZOLE
  33. POLATUZUMAB VEDOTIN. [Suspect]
     Active Substance: POLATUZUMAB VEDOTIN
     Indication: DIFFUSE LARGE B-CELL LYMPHOMA
     Dosage: MOST RECENT DOSE PRIOR TO SAE/AE ONSET ON 26/AUG/2019 (99 MG)?MOST RECENT DOSE PRIOR TO SAE/AE ONSET
     Route: 042
     Dates: start: 20190610
  34. DEXTRAN;HYPROMELLOSE [Concomitant]
     Indication: LACRIMATION INCREASED
     Route: 065
     Dates: start: 20190809
  35. CYCLOPHOSPHAMIDE. [Suspect]
     Active Substance: CYCLOPHOSPHAMIDE
     Indication: DIFFUSE LARGE B-CELL LYMPHOMA
     Dosage: DATE OF MOST RECENT DOSE 578 MG OF CYCLOPHOSPHAMIDE PRIOR TO SAE/AE ONSET:27/AUG/2019?DATE OF MOST R
     Route: 042
     Dates: start: 20190611
  36. DILTIAZEM. [Concomitant]
     Active Substance: DILTIAZEM
     Indication: HYPERTENSION
     Route: 048
  37. ACYCLOVIR. [Concomitant]
     Active Substance: ACYCLOVIR
     Indication: ANTIVIRAL PROPHYLAXIS
     Route: 048
     Dates: start: 20190610
  38. PLASMALYTE A [Concomitant]
     Indication: ELECTROLYTE DEPLETION
     Route: 042
     Dates: start: 20190704, end: 20190704
  39. MEPRON (UNITED STATES) [Concomitant]
     Dosage: SOLUTION
     Route: 042
     Dates: start: 20190731, end: 20190804
  40. UDENYCA [Concomitant]
     Active Substance: PEGFILGRASTIM-CBQV
     Route: 058
     Dates: start: 20190703, end: 20190703
  41. RED BLOOD CELLS [Concomitant]
     Active Substance: HUMAN RED BLOOD CELL
     Indication: ANAEMIA
     Route: 042
     Dates: start: 20190903, end: 20190903
  42. PLATELETS [Concomitant]
     Active Substance: HUMAN PLATELET, ALLOGENIC
     Indication: PLATELET COUNT DECREASED
     Dosage: 1 UNIT
     Route: 042
     Dates: start: 20190904, end: 20190914

REACTIONS (4)
  - Stomatitis [Recovered/Resolved]
  - Gastrointestinal haemorrhage [Recovered/Resolved]
  - Sepsis [Recovered/Resolved]
  - Confusional state [Recovered/Resolved]

NARRATIVE: CASE EVENT DATE: 20190731
